FAERS Safety Report 5158595-9 (Version None)
Quarter: 2006Q4

REPORT INFORMATION
  Report Type: 
  Country: None (occurrence: None)
  Receive Date: 20061128
  Receipt Date: 20061116
  Transmission Date: 20070319
  Serious: Yes (Hospitalization)
  Sender: FDA-Public Use
  Company Number: US-ELI_LILLY_AND_COMPANY-US200611003191

PATIENT
  Sex: Male

DRUGS (6)
  1. CYMBALTA [Suspect]
     Indication: BIPOLAR I DISORDER
     Dosage: 60 MG, DAILY (1/D)
     Dates: start: 20061011
  2. CYMBALTA [Suspect]
     Dosage: 30 MG, DAILY (1/D)
     Dates: start: 20060101
  3. LITHIUM CARBONATE [Concomitant]
     Dosage: 1350 UNK, EACH EVENING
  4. QUETIAPINE FUMARATE [Concomitant]
     Dosage: 100 UNK, EACH EVENING
  5. HYDROXYZINE [Concomitant]
     Dosage: 25 UNK, 3/D
  6. CLONAZEPAM [Concomitant]
     Dosage: 1 MG, EACH EVENING

REACTIONS (1)
  - DYSTONIA [None]
